FAERS Safety Report 12622211 (Version 2)
Quarter: 2016Q3

REPORT INFORMATION
  Report Type: Spontaneous
  Country: DE (occurrence: DE)
  Receive Date: 20160804
  Receipt Date: 20160829
  Transmission Date: 20161109
  Serious: No
  Sender: FDA-Public Use
  Company Number: DE-GLAXOSMITHKLINE-DE2016GSK111872

PATIENT
  Age: 37 Year
  Sex: Female
  Weight: 68 kg

DRUGS (5)
  1. NUCALA [Suspect]
     Active Substance: MEPOLIZUMAB
     Indication: PRODUCT USED FOR UNKNOWN INDICATION
     Dosage: 100 MG, Z
     Route: 058
     Dates: start: 20160602, end: 20160629
  2. FOSTER (NOS) [Concomitant]
     Indication: ASTHMA
     Dosage: 1 PUFF(S), BID
     Dates: start: 2014
  3. PREDNISOLON [Concomitant]
     Active Substance: PREDNISOLONE
     Indication: ASTHMA
     Dosage: 5 MG, QD
     Dates: start: 2015
  4. THEOPHYLLIN [Concomitant]
     Active Substance: THEOPHYLLINE ANHYDROUS
     Indication: ASTHMA
     Dosage: 250 MG, BID
     Dates: start: 2015
  5. MONTELUKAST [Concomitant]
     Active Substance: MONTELUKAST SODIUM
     Indication: ASTHMA
     Dosage: 10 MG, QD
     Dates: start: 2015

REACTIONS (10)
  - Dyspnoea [Recovered/Resolved]
  - Respiratory disorder [Recovered/Resolved]
  - Influenza like illness [Recovered/Resolved]
  - Asthma [Recovered/Resolved]
  - Infection [Recovered/Resolved]
  - Gastrointestinal disorder [Recovered/Resolved]
  - Fatigue [Recovered/Resolved]
  - Fatigue [Recovered/Resolved]
  - Malaise [Recovered/Resolved]
  - Condition aggravated [Recovered/Resolved]

NARRATIVE: CASE EVENT DATE: 2016
